FAERS Safety Report 4575049-9 (Version None)
Quarter: 2005Q1

REPORT INFORMATION
  Report Type: 
  Country: None (occurrence: None)
  Receive Date: 20050208
  Receipt Date: 20040923
  Transmission Date: 20050727
  Serious: Yes (Death)
  Sender: FDA-Public Use
  Company Number: US-GLAXOSMITHKLINE-A0528065A

PATIENT
  Age: 16 Year
  Sex: Male
  Weight: 69.1 kg

DRUGS (7)
  1. PAXIL [Suspect]
     Indication: DEPRESSION
     Dosage: 25MG PER DAY
     Route: 048
     Dates: start: 20030908
  2. COCAINE [Suspect]
     Indication: POLYSUBSTANCE ABUSE
     Route: 065
  3. METHADONE [Suspect]
     Indication: POLYSUBSTANCE ABUSE
     Route: 065
  4. HYDROCODONE [Suspect]
     Indication: POLYSUBSTANCE ABUSE
     Route: 065
  5. VALIUM [Concomitant]
  6. BENADRYL [Concomitant]
     Indication: DRUG USE FOR UNKNOWN INDICATION
     Dosage: 50MG THREE TIMES PER DAY
     Route: 048
     Dates: start: 20030901
  7. ALBUTEROL [Concomitant]
     Indication: DRUG USE FOR UNKNOWN INDICATION
     Route: 055

REACTIONS (3)
  - INSOMNIA [None]
  - MOOD SWINGS [None]
  - OVERDOSE [None]
